FAERS Safety Report 25121694 (Version 1)
Quarter: 2025Q1

REPORT INFORMATION
  Report Type: Spontaneous
  Country: US (occurrence: US)
  Receive Date: 20250326
  Receipt Date: 20250326
  Transmission Date: 20250409
  Serious: Yes (Other)
  Sender: COOPERSURGICAL
  Company Number: US-COOPERSURGICAL, INC.-2025CPS001992

PATIENT
  Age: 52 Year
  Sex: Female
  Weight: 81.633 kg

DRUGS (6)
  1. PARAGARD T 380A [Suspect]
     Active Substance: COPPER
     Route: 015
     Dates: start: 20150224
  2. LEVOTHYROXINE [Concomitant]
     Active Substance: LEVOTHYROXINE
     Dates: start: 201609
  3. LYRICA [Concomitant]
     Active Substance: PREGABALIN
     Dates: start: 201810, end: 202212
  4. OXYCODONE [Concomitant]
     Active Substance: OXYCODONE
     Dates: start: 201810, end: 202212
  5. ATORVASTATIN [Concomitant]
     Active Substance: ATORVASTATIN
     Dates: start: 201609
  6. PAXIL [Concomitant]
     Active Substance: PAROXETINE HYDROCHLORIDE
     Dates: start: 201212

REACTIONS (9)
  - Hysterectomy [Recovered/Resolved]
  - Device breakage [Unknown]
  - Foreign body in urogenital tract [Unknown]
  - Complication of device removal [Unknown]
  - Anxiety [Unknown]
  - Depression [Unknown]
  - Stress [Unknown]
  - Procedural pain [Unknown]
  - Emotional disorder [Unknown]

NARRATIVE: CASE EVENT DATE: 20210908
